FAERS Safety Report 5030145-7 (Version None)
Quarter: 2006Q2

REPORT INFORMATION
  Report Type: 
  Country: None (occurrence: None)
  Receive Date: 20060614
  Receipt Date: 20060601
  Transmission Date: 20061013
  Serious: Yes (Hospitalization)
  Sender: FDA-Public Use
  Company Number: 2006071362

PATIENT
  Age: 73 Year
  Sex: Male

DRUGS (7)
  1. SUTENT [Suspect]
     Indication: METASTATIC RENAL CELL CARCINOMA
     Dosage: 50 MG (50 MG, 4 WEEKS INTERVAL: 2 WEEKS), ORAL
     Route: 048
     Dates: start: 20060321, end: 20060530
  2. HYTACAND (CANDESARTAN CILEXETIL, HYDROCHLOROTHIAZIDE) [Concomitant]
  3. ZANIDIP (LERCANIDIPINE HYDROCHLORIDE) [Concomitant]
  4. NEBILOX (NEBIVOLOL HYDROCHLORIDE) [Concomitant]
  5. SIMVASTATIN [Concomitant]
  6. ALLOPURINOL [Concomitant]
  7. SINTROM [Concomitant]

REACTIONS (4)
  - AMNESIA [None]
  - CEREBRAL HAEMATOMA [None]
  - CONVULSION [None]
  - HEMIPARESIS [None]
